FAERS Safety Report 9143778 (Version 1)
Quarter: 2013Q1

REPORT INFORMATION
  Report Type: Spontaneous
  Country: US (occurrence: US)
  Receive Date: 20130306
  Receipt Date: 20130306
  Transmission Date: 20140127
  Serious: Yes (Other)
  Sender: FDA-Public Use
  Company Number: US-ROCHE-1097346

PATIENT
  Age: 23 Year
  Sex: Male
  Weight: 90.8 kg

DRUGS (3)
  1. ACCUTANE [Suspect]
     Indication: ACNE CYSTIC
     Route: 048
     Dates: start: 198909
  2. ACCUTANE [Suspect]
     Route: 048
     Dates: start: 19891012, end: 198912
  3. ACCUTANE [Suspect]
     Route: 048
     Dates: end: 19900330

REACTIONS (8)
  - Colitis ulcerative [Unknown]
  - Inflammatory bowel disease [Unknown]
  - Depression [Not Recovered/Not Resolved]
  - Suicidal ideation [Not Recovered/Not Resolved]
  - Large intestine polyp [Unknown]
  - Blood triglycerides increased [Unknown]
  - Irritable bowel syndrome [Unknown]
  - Dry skin [Unknown]
